FAERS Safety Report 25953653 (Version 1)
Quarter: 2025Q4

REPORT INFORMATION
  Report Type: Spontaneous
  Country: US (occurrence: US)
  Receive Date: 20251023
  Receipt Date: 20251023
  Transmission Date: 20260118
  Serious: No
  Sender: ANI
  Company Number: US-ANIPHARMA-2025-US-032029

PATIENT
  Age: 71 Year
  Sex: Female

DRUGS (10)
  1. NEXLIZET [Concomitant]
     Active Substance: BEMPEDOIC ACID\EZETIMIBE
     Indication: Product used for unknown indication
  2. OMEPRAZOLE [Concomitant]
     Active Substance: OMEPRAZOLE
  3. CORTICOTROPIN [Suspect]
     Active Substance: CORTICOTROPIN
     Indication: Dermatitis atopic
     Dosage: 40 UNITS TWICE A WEEK
     Route: 058
  4. PROPRANOLOL HYDROCHLORIDE [Concomitant]
     Active Substance: PROPRANOLOL HYDROCHLORIDE
  5. LEQVIO [Concomitant]
     Active Substance: INCLISIRAN SODIUM
  6. EPIPEN [Concomitant]
     Active Substance: EPINEPHRINE
  7. REPATHA [Concomitant]
     Active Substance: EVOLOCUMAB
  8. LUNESTA [Concomitant]
     Active Substance: ESZOPICLONE
  9. HYDROCORTISONE [Concomitant]
     Active Substance: HYDROCORTISONE
  10. CORTICOTROPIN [Suspect]
     Active Substance: CORTICOTROPIN
     Indication: Dermatitis atopic
     Dosage: 40 UNITS TWICE WEEKLY
     Route: 058

REACTIONS (4)
  - Injection site bruising [Unknown]
  - Injection site swelling [Unknown]
  - Increased tendency to bruise [Unknown]
  - Injection site pruritus [Unknown]
